FAERS Safety Report 8141763-1 (Version None)
Quarter: 2012Q1

REPORT INFORMATION
  Report Type: 
  Country: None (occurrence: None)
  Receive Date: 20120216
  Receipt Date: 20120213
  Transmission Date: 20120608
  Serious: No
  Sender: FDA-Public Use
  Company Number: US-PFIZER INC-2012039798

PATIENT
  Sex: Female
  Weight: 90.703 kg

DRUGS (3)
  1. CHANTIX [Suspect]
     Indication: SMOKING CESSATION THERAPY
     Dosage: UNK
     Dates: start: 20070101
  2. CHANTIX [Suspect]
     Dosage: 1 MG, 2X/DAY
  3. CHANTIX [Suspect]
     Dosage: 0.5 MG, DAILY
     Dates: start: 20111201

REACTIONS (1)
  - SKIN CHAPPED [None]
